FAERS Safety Report 14866063 (Version 1)
Quarter: 2018Q2

REPORT INFORMATION
  Report Type: Spontaneous
  Country: US (occurrence: US)
  Receive Date: 20180508
  Receipt Date: 20180508
  Transmission Date: 20180711
  Serious: No
  Sender: FDA-Public Use
  Company Number: US-ROCHE-2080177

PATIENT
  Sex: Male

DRUGS (1)
  1. ESBRIET [Suspect]
     Active Substance: PIRFENIDONE
     Indication: PULMONARY ARTERIAL HYPERTENSION
     Dosage: ONGOING: YES
     Route: 048
     Dates: start: 20171106

REACTIONS (3)
  - Intentional product use issue [Unknown]
  - Off label use [Unknown]
  - Fatigue [Unknown]
